FAERS Safety Report 4400996-8 (Version None)
Quarter: 2004Q3

REPORT INFORMATION
  Report Type: 
  Country: None (occurrence: None)
  Receive Date: 20040907
  Receipt Date: 20030911
  Transmission Date: 20050211
  Serious: No
  Sender: FDA-Public Use
  Company Number: US-BRISTOL-MYERS SQUIBB COMPANY-12380465

PATIENT
  Age: 69 Year
  Sex: Female
  Weight: 86 kg

DRUGS (3)
  1. COUMADIN [Suspect]
     Indication: THROMBOSIS
     Route: 048
     Dates: start: 20021201
  2. FEMARA [Concomitant]
  3. PROCARDIA [Concomitant]

REACTIONS (1)
  - BLOOD VISCOSITY INCREASED [None]
